FAERS Safety Report 5965991-6 (Version None)
Quarter: 2008Q4

REPORT INFORMATION
  Report Type: 
  Country: None (occurrence: None)
  Receive Date: 20081121
  Receipt Date: 20081121
  Transmission Date: 20090506
  Serious: Yes (Other)
  Sender: FDA-Public Use
  Company Number: None

PATIENT
  Age: 28 Year
  Sex: Female
  Weight: 43.5453 kg

DRUGS (4)
  1. CLINDAMYCIN HCL [Suspect]
     Indication: STAPHYLOCOCCAL INFECTION
     Dosage: 300 MG 1 PILL/EA 6 HOURS PO
     Route: 048
     Dates: start: 20081022, end: 20081031
  2. PREDNISONE TAB [Concomitant]
  3. ZYRTEC [Concomitant]
  4. BENADRYLL GEL TABLETS [Concomitant]

REACTIONS (7)
  - ABDOMINAL PAIN [None]
  - DIZZINESS [None]
  - HEADACHE [None]
  - NAUSEA [None]
  - PRURITUS [None]
  - RASH GENERALISED [None]
  - RASH PUSTULAR [None]
